FAERS Safety Report 17620904 (Version 2)
Quarter: 2020Q2

REPORT INFORMATION
  Report Type: Spontaneous
  Country: AU (occurrence: AU)
  Receive Date: 20200403
  Receipt Date: 20200427
  Transmission Date: 20200713
  Serious: Yes (Hospitalization)
  Sender: FDA-Public Use
  Company Number: AU-BEH-2020113783

PATIENT
  Age: 65 Year
  Sex: Female
  Weight: 89.6 kg

DRUGS (7)
  1. HIZENTRA [Suspect]
     Active Substance: HUMAN IMMUNOGLOBULIN G
     Dosage: 9 GRAM -  ONLY INFUSED HALF OF A DOSE, TOT
     Route: 058
     Dates: start: 20200228, end: 20200228
  2. HIZENTRA [Suspect]
     Active Substance: HUMAN IMMUNOGLOBULIN G
     Dosage: UNK
     Route: 058
     Dates: start: 20200221, end: 20200221
  3. HIZENTRA [Suspect]
     Active Substance: HUMAN IMMUNOGLOBULIN G
     Dosage: UNK
     Route: 058
     Dates: start: 20200221, end: 20200221
  4. HIZENTRA [Suspect]
     Active Substance: HUMAN IMMUNOGLOBULIN G
     Dosage: UNK
     Route: 058
     Dates: start: 20200228, end: 20200228
  5. HIZENTRA [Suspect]
     Active Substance: HUMAN IMMUNOGLOBULIN G
     Dosage: 9 GRAM, TOT
     Route: 058
     Dates: start: 20200221, end: 20200221
  6. HIZENTRA [Suspect]
     Active Substance: HUMAN IMMUNOGLOBULIN G
     Dosage: UNK
     Route: 058
     Dates: start: 20200228, end: 20200228
  7. HIZENTRA [Suspect]
     Active Substance: HUMAN IMMUNOGLOBULIN G
     Indication: CHRONIC LYMPHOCYTIC LEUKAEMIA
     Dosage: 9 GRAM, QW
     Route: 058
     Dates: start: 20200221

REACTIONS (17)
  - Peripheral swelling [Not Recovered/Not Resolved]
  - Pulmonary hypertension [Unknown]
  - Hypoxia [Unknown]
  - Arthralgia [Not Recovered/Not Resolved]
  - Tachycardia [Unknown]
  - Dyspnoea [Recovered/Resolved]
  - Agitation [Unknown]
  - Eczema [Not Recovered/Not Resolved]
  - Pyrexia [Unknown]
  - Fluid overload [Unknown]
  - Pruritus [Not Recovered/Not Resolved]
  - Insomnia [Unknown]
  - Diarrhoea [Recovered/Resolved]
  - Dyspnoea [Unknown]
  - Erythema [Not Recovered/Not Resolved]
  - Cough [Unknown]
  - Respiratory disorder [Unknown]

NARRATIVE: CASE EVENT DATE: 20200221
